FAERS Safety Report 21596746 (Version 2)
Quarter: 2022Q4

REPORT INFORMATION
  Report Type: Spontaneous
  Country: GB (occurrence: GB)
  Receive Date: 20221115
  Receipt Date: 20221122
  Transmission Date: 20230113
  Serious: Yes (Other)
  Sender: FDA-Public Use
  Company Number: GB-MHRA-MED-202211101916535720-CQLWR

PATIENT
  Age: 47 Year
  Sex: Female
  Weight: 44 kg

DRUGS (1)
  1. TERBINAFINE [Suspect]
     Active Substance: TERBINAFINE
     Indication: Nail infection
     Dosage: UNK
     Route: 065

REACTIONS (1)
  - Blister [Recovered/Resolved]
